FAERS Safety Report 21706850 (Version 2)
Quarter: 2023Q1

REPORT INFORMATION
  Report Type: Report from Study
  Country: US (occurrence: US)
  Receive Date: 20221209
  Receipt Date: 20230110
  Transmission Date: 20230418
  Serious: No
  Sender: FDA-Public Use
  Company Number: US-ABBVIE-4226565

PATIENT
  Sex: Male

DRUGS (1)
  1. HUMIRA [Suspect]
     Active Substance: ADALIMUMAB
     Indication: Colitis ulcerative
     Dosage: CITRATE FREE
     Route: 058
     Dates: start: 20220601

REACTIONS (5)
  - Anal fissure [Unknown]
  - Therapeutic product effect incomplete [Unknown]
  - Colitis ulcerative [Recovered/Resolved]
  - Haemoglobin decreased [Unknown]
  - Memory impairment [Recovered/Resolved]
